FAERS Safety Report 4726968-1 (Version None)
Quarter: 2005Q3

REPORT INFORMATION
  Report Type: 
  Country: None (occurrence: None)
  Receive Date: 20050726
  Receipt Date: 20050712
  Transmission Date: 20060218
  Serious: Yes (Death)
  Sender: FDA-Public Use
  Company Number: US-2005-004900

PATIENT
  Age: 62 Year
  Sex: Male

DRUGS (16)
  1. BETASERON [Suspect]
     Indication: SECONDARY PROGRESSIVE MULTIPLE SCLEROSIS
     Dosage: 2.4 MIU, EVERY 2D, SUBCUTANEOUS
     Route: 058
     Dates: start: 19950425
  2. LAMISIL [Concomitant]
  3. LANOXIN [Concomitant]
  4. BACLOFEN [Concomitant]
  5. FLONASE [Concomitant]
  6. SENOKOT (SENNA ALEXANDRINA) [Concomitant]
  7. SPIRONOLACTONE [Concomitant]
  8. PROZAC [Concomitant]
  9. HYDRALAZINE HCL [Concomitant]
  10. COUMADIN [Concomitant]
  11. VITAMIN B-12 [Concomitant]
  12. POTASSIUM CHLORIDE [Concomitant]
  13. PREVACID [Concomitant]
  14. TOPROL-XL [Concomitant]
  15. LIPITOR [Concomitant]
  16. LASIX [Concomitant]

REACTIONS (6)
  - BLADDER CANCER [None]
  - COLON CANCER [None]
  - HEPATIC NEOPLASM MALIGNANT [None]
  - LARGE INTESTINE CARCINOMA [None]
  - METASTATIC NEOPLASM [None]
  - PROSTATE CANCER [None]
